FAERS Safety Report 22005910 (Version 1)
Quarter: 2023Q1

REPORT INFORMATION
  Report Type: Spontaneous
  Country: US (occurrence: None)
  Receive Date: 20230216
  Receipt Date: 20230216
  Transmission Date: 20230417
  Serious: Yes (Other)
  Sender: FDA-Public Use
  Company Number: None

PATIENT
  Age: 35 Year
  Sex: Female
  Weight: 147.15 kg

DRUGS (1)
  1. PROPARACAINE [Suspect]
     Active Substance: PROPARACAINE
     Indication: Anaesthesia eye
     Dates: start: 20230209, end: 20230213

REACTIONS (5)
  - Instillation site dryness [None]
  - Instillation site erythema [None]
  - Vision blurred [None]
  - Conjunctivitis allergic [None]
  - Instillation site swelling [None]

NARRATIVE: CASE EVENT DATE: 20230209
